FAERS Safety Report 12151411 (Version 2)
Quarter: 2020Q3

REPORT INFORMATION
  Report Type: Spontaneous
  Country: FR (occurrence: FR)
  Receive Date: 20160304
  Receipt Date: 20200723
  Transmission Date: 20201102
  Serious: Yes (Congenital Anomaly, Other)
  Sender: FDA-Public Use
  Company Number: FR-ABBVIE-16P-056-1575191-00

PATIENT
  Sex: Female
  Weight: 2.68 kg

DRUGS (7)
  1. URBANYL [Suspect]
     Active Substance: CLOBAZAM
     Indication: MATERNAL EXPOSURE TIMING UNSPECIFIED
     Route: 064
  2. URBANYL [Suspect]
     Active Substance: CLOBAZAM
     Route: 064
  3. ORTENAL [Suspect]
     Active Substance: AMPHETAMINE SULFATE\PHENOBARBITAL
     Route: 064
  4. DEPAKINE [Suspect]
     Active Substance: VALPROATE SODIUM
     Route: 063
  5. CLOBAZAM. [Suspect]
     Active Substance: CLOBAZAM
     Indication: MATERNAL EXPOSURE TIMING UNSPECIFIED
     Route: 064
  6. DEPAKINE [Suspect]
     Active Substance: VALPROATE SODIUM
     Indication: MATERNAL EXPOSURE TIMING UNSPECIFIED
     Route: 064
  7. ORTENAL [Suspect]
     Active Substance: AMPHETAMINE SULFATE\PHENOBARBITAL
     Indication: MATERNAL EXPOSURE TIMING UNSPECIFIED
     Route: 064

REACTIONS (16)
  - Poor quality sleep [Unknown]
  - Aggression [Unknown]
  - Autism spectrum disorder [Not Recovered/Not Resolved]
  - Vomiting [Unknown]
  - Nystagmus [Unknown]
  - Growth retardation [Not Recovered/Not Resolved]
  - Selective eating disorder [Unknown]
  - Exposure via breast milk [Unknown]
  - Encephalopathy [Not Recovered/Not Resolved]
  - Anger [Unknown]
  - Autism spectrum disorder [Unknown]
  - Tonic clonic movements [Not Recovered/Not Resolved]
  - Premature baby [Unknown]
  - Developmental delay [Not Recovered/Not Resolved]
  - Crying [Unknown]
  - Initial insomnia [Unknown]

NARRATIVE: CASE EVENT DATE: 19801122
